FAERS Safety Report 19908145 (Version 2)
Quarter: 2021Q4

REPORT INFORMATION
  Report Type: Report from Study
  Country: FR (occurrence: FR)
  Receive Date: 20211001
  Receipt Date: 20211007
  Transmission Date: 20220303
  Serious: Yes (Other)
  Sender: FDA-Public Use
  Company Number: FR-PFM-2021-09348

PATIENT
  Age: 63 Year
  Sex: Male

DRUGS (4)
  1. ENCORAFENIB [Suspect]
     Active Substance: ENCORAFENIB
     Indication: Malignant melanoma
     Dosage: 6 DF,PER DAY ( IN THE MORNING)
     Route: 048
     Dates: start: 202009
  2. ENCORAFENIB [Suspect]
     Active Substance: ENCORAFENIB
     Dosage: 4 DF, PER DAY ( IN THE MORNING)
     Route: 048
     Dates: start: 202107
  3. BINIMETINIB [Suspect]
     Active Substance: BINIMETINIB
     Indication: Malignant melanoma
     Dosage: 6 DF,PER DAY (IN THE MORNING AND IN THE EVENING)
     Route: 048
     Dates: start: 202009
  4. BINIMETINIB [Suspect]
     Active Substance: BINIMETINIB
     Dosage: 2 DF, BID (2/DAY) (2 MORNING AND 2 EVENING)
     Route: 048
     Dates: start: 202107

REACTIONS (11)
  - Tibia fracture [Unknown]
  - Fibula fracture [Unknown]
  - Appendicitis [Unknown]
  - Cataract [Not Recovered/Not Resolved]
  - Fatigue [Unknown]
  - Arthralgia [Not Recovered/Not Resolved]
  - Pain in jaw [Not Recovered/Not Resolved]
  - Constipation [Not Recovered/Not Resolved]
  - Diarrhoea [Unknown]
  - Laboratory test abnormal [Unknown]
  - Product dose omission issue [Unknown]

NARRATIVE: CASE EVENT DATE: 20201101
